FAERS Safety Report 6311721-8 (Version None)
Quarter: 2009Q3

REPORT INFORMATION
  Report Type: 
  Country: None (occurrence: None)
  Receive Date: 20090817
  Receipt Date: 20090714
  Transmission Date: 20100115
  Serious: No
  Sender: FDA-Public Use
  Company Number: US-B.I. PHARMACEUTICALS,INC./RIDGEFIELD-2009-BP-09619BP

PATIENT
  Sex: Female

DRUGS (2)
  1. VIRAMUNE [Suspect]
     Indication: HIV INFECTION
     Dates: start: 20010101
  2. COMBIVIR [Concomitant]
     Indication: HIV INFECTION

REACTIONS (4)
  - ABDOMINAL DISTENSION [None]
  - BODY DYSMORPHIC DISORDER [None]
  - FEELING ABNORMAL [None]
  - SKIN TIGHTNESS [None]
